FAERS Safety Report 8264682-9 (Version None)
Quarter: 2012Q2

REPORT INFORMATION
  Report Type: 
  Country: None (occurrence: None)
  Receive Date: 20120406
  Receipt Date: 20120403
  Transmission Date: 20120825
  Serious: Yes (Hospitalization)
  Sender: FDA-Public Use
  Company Number: ES-AMGEN-ESPCT2012021304

PATIENT
  Age: 77 Year
  Sex: Male

DRUGS (8)
  1. PACLITAXEL [Concomitant]
     Dosage: 176 MG, QWK
     Route: 042
     Dates: start: 20120112
  2. CIPROFLOXACIN [Concomitant]
     Dosage: 500 MG, BID
     Route: 048
     Dates: start: 20120328
  3. ASPIRIN [Concomitant]
     Dosage: 150 MG, QD
     Route: 048
     Dates: start: 20040831
  4. PANITUMUMAB [Suspect]
     Indication: HEAD AND NECK CANCER
     Dosage: 478 MG, Q2WK
     Route: 042
     Dates: start: 20120112
  5. DIAMICRON [Concomitant]
     Dosage: 30 MG, QD
     Route: 048
     Dates: start: 20100331
  6. NITROGLYCERIN [Concomitant]
     Dosage: 15 MG, QD
     Route: 062
     Dates: start: 20110421
  7. FINASTERIDE [Concomitant]
     Dosage: 5 MG, QD
     Route: 048
     Dates: start: 20110421
  8. SIMVASTATIN [Concomitant]
     Dosage: 20 MG, QD
     Route: 048
     Dates: start: 20111229

REACTIONS (1)
  - ISCHAEMIC CEREBRAL INFARCTION [None]
